FAERS Safety Report 12037354 (Version 7)
Quarter: 2016Q2

REPORT INFORMATION
  Report Type: Spontaneous
  Country: JP (occurrence: JP)
  Receive Date: 20160208
  Receipt Date: 20160419
  Transmission Date: 20160815
  Serious: Yes (Death, Other)
  Sender: FDA-Public Use
  Company Number: JP-ROCHE-1707726

PATIENT
  Age: 80 Year
  Sex: Female
  Weight: 48 kg

DRUGS (12)
  1. VILANTEROL TRIFENATATE [Concomitant]
     Active Substance: VILANTEROL TRIFENATATE
     Route: 065
     Dates: start: 20060403
  2. MENESIT [Concomitant]
     Active Substance: CARBIDOPA\LEVODOPA
     Route: 065
     Dates: start: 20060403
  3. MUCOSOLATE [Concomitant]
     Active Substance: AMBROXOL HYDROCHLORIDE
     Route: 065
     Dates: start: 20060403
  4. HOKUNALIN [Concomitant]
     Active Substance: TULOBUTEROL
     Route: 065
     Dates: start: 20060403
  5. ARTANE [Concomitant]
     Active Substance: TRIHEXYPHENIDYL HYDROCHLORIDE
     Route: 065
     Dates: start: 20060403
  6. THEO-DUR [Concomitant]
     Active Substance: THEOPHYLLINE ANHYDROUS
     Route: 065
     Dates: start: 20100803
  7. HOKUNALIN [Concomitant]
     Active Substance: TULOBUTEROL
     Route: 065
     Dates: start: 20060403
  8. MEDICON (DEXTROMETHORPHAN HYDROBROMIDE) [Concomitant]
     Active Substance: DEXTROMETHORPHAN HYDROBROMIDE
     Route: 065
     Dates: start: 20060403
  9. XOLAIR [Suspect]
     Active Substance: OMALIZUMAB
     Indication: ASTHMA
     Route: 058
     Dates: start: 20130329
  10. SINGULAIR [Concomitant]
     Active Substance: MONTELUKAST SODIUM
     Route: 065
     Dates: start: 20060403
  11. VILANTEROL TRIFENATATE [Concomitant]
     Active Substance: VILANTEROL TRIFENATATE
     Route: 065
     Dates: start: 20060403
  12. SPIRIVA [Concomitant]
     Active Substance: TIOTROPIUM BROMIDE MONOHYDRATE
     Route: 055
     Dates: start: 20150410

REACTIONS (6)
  - Fall [Unknown]
  - Loss of consciousness [Unknown]
  - Arrhythmia [Fatal]
  - Cardio-respiratory arrest [Fatal]
  - Wheezing [Unknown]
  - Cerebrovascular disorder [Fatal]

NARRATIVE: CASE EVENT DATE: 20151109
